FAERS Safety Report 6047286-8 (Version None)
Quarter: 2009Q1

REPORT INFORMATION
  Report Type: 
  Country: None (occurrence: None)
  Receive Date: 20090122
  Receipt Date: 20090109
  Transmission Date: 20090719
  Serious: Yes (Other)
  Sender: FDA-Public Use
  Company Number: US-ELI_LILLY_AND_COMPANY-US200901001384

PATIENT
  Sex: Female

DRUGS (6)
  1. CYMBALTA [Suspect]
     Indication: ANXIETY
     Dosage: UNK, UNK
     Dates: start: 20080101
  2. CYMBALTA [Suspect]
     Dates: start: 20081001
  3. ASPIRIN [Concomitant]
  4. DIOVAN [Concomitant]
  5. DARVOCET [Concomitant]
  6. MULTI-VITAMINS [Concomitant]

REACTIONS (5)
  - BLOOD PRESSURE INADEQUATELY CONTROLLED [None]
  - EMBOLISM [None]
  - HYPERTENSION [None]
  - TRANSIENT ISCHAEMIC ATTACK [None]
  - VISUAL IMPAIRMENT [None]
